FAERS Safety Report 18466160 (Version 1)
Quarter: 2020Q4

REPORT INFORMATION
  Report Type: Spontaneous
  Country: TW (occurrence: TW)
  Receive Date: 20201105
  Receipt Date: 20201105
  Transmission Date: 20210114
  Serious: Yes (Other)
  Sender: FDA-Public Use
  Company Number: TW-AMGEN-TWNSP2020176880

PATIENT
  Age: 70 Year
  Sex: Female

DRUGS (1)
  1. PROLIA [Suspect]
     Active Substance: DENOSUMAB
     Indication: OSTEOPOROSIS
     Dosage: UNK
     Route: 065
     Dates: start: 20190902

REACTIONS (4)
  - Asthenia [Unknown]
  - Fatigue [Unknown]
  - Nephrolithiasis [Unknown]
  - Tooth disorder [Unknown]

NARRATIVE: CASE EVENT DATE: 201910
